FAERS Safety Report 6968201-6 (Version None)
Quarter: 2010Q3

REPORT INFORMATION
  Report Type: 
  Country: None (occurrence: None)
  Receive Date: 20100907
  Receipt Date: 20100827
  Transmission Date: 20110219
  Serious: Yes (Hospitalization, Other)
  Sender: FDA-Public Use
  Company Number: US-ASTRAZENECA-2010SE35014

PATIENT
  Age: 92 Year
  Sex: Male
  Weight: 64 kg

DRUGS (9)
  1. ZOLADEX [Suspect]
     Indication: PROSTATE CANCER
     Route: 058
     Dates: start: 20100421, end: 20100719
  2. COUMADIN [Concomitant]
     Indication: ATRIAL FIBRILLATION
     Dosage: 2-3 DOSES
     Route: 048
  3. FINASTERIDE [Concomitant]
     Indication: PROSTATE CANCER
     Route: 048
  4. INSULIN [Concomitant]
     Indication: DIABETES MELLITUS
     Route: 058
  5. LISINOPRIL [Concomitant]
     Route: 048
  6. AMIODARONE [Concomitant]
     Route: 048
  7. GEMFIBROZIL [Concomitant]
     Route: 048
  8. NIACIN [Concomitant]
     Route: 048
  9. PROTONIX [Concomitant]
     Route: 048

REACTIONS (1)
  - IMPLANT SITE HAEMATOMA [None]
